FAERS Safety Report 8214543-6 (Version None)
Quarter: 2012Q1

REPORT INFORMATION
  Report Type: 
  Country: None (occurrence: None)
  Receive Date: 20120228
  Receipt Date: 20110112
  Transmission Date: 20120608
  Serious: Yes (Hospitalization)
  Sender: FDA-Public Use
  Company Number: RB-20652-2011

PATIENT
  Age: 58 Year
  Sex: Female
  Weight: 154.223 kg

DRUGS (2)
  1. SUBOXONE [Suspect]
     Indication: DRUG DEPENDENCE
     Dosage: (8 MG BID SUBLINGUAL)
     Route: 060
     Dates: start: 20080101
  2. CLONAZEPAM [Concomitant]

REACTIONS (1)
  - PNEUMONIA [None]
